FAERS Safety Report 25722142 (Version 2)
Quarter: 2025Q3

REPORT INFORMATION
  Report Type: Spontaneous
  Country: US (occurrence: US)
  Receive Date: 20250825
  Receipt Date: 20250908
  Transmission Date: 20251021
  Serious: Yes (Hospitalization, Other)
  Sender: ETHYPHARM
  Company Number: US-ETHYPHARM-2025002499

PATIENT
  Age: 53 Year
  Sex: Female

DRUGS (4)
  1. BUPRENORPHINE HYDROCHLORIDE\NALOXONE HYDROCHLORIDE [Suspect]
     Active Substance: BUPRENORPHINE HYDROCHLORIDE\NALOXONE HYDROCHLORIDE
     Indication: Drug use disorder
     Dosage: HER TREATMENT DOSE RANGED FROM 8-24 MG/DAY (~1?3?TABLETS OR STRIPS/DAY)
     Route: 060
  2. BUPRENORPHINE HYDROCHLORIDE\NALOXONE HYDROCHLORIDE [Suspect]
     Active Substance: BUPRENORPHINE HYDROCHLORIDE\NALOXONE HYDROCHLORIDE
     Indication: Drug use disorder
     Dosage: HER TREATMENT DOSE RANGED FROM 8-24 MG/DAY
     Route: 060
  3. BUPRENORPHINE\NALOXONE [Suspect]
     Active Substance: BUPRENORPHINE\NALOXONE
     Indication: Drug use disorder
     Dosage: HER TREATMENT DOSE RANGED FROM 8-24 MG/DAY (~1?3?TABLETS OR STRIPS/DAY)
     Route: 060
  4. BUPRENORPHINE\NALOXONE [Suspect]
     Active Substance: BUPRENORPHINE\NALOXONE
     Indication: Drug use disorder
     Dosage: HER TREATMENT DOSE RANGED FROM 8-24 MG/DAY (~1?3?TABLETS OR STRIPS/DAY)
     Route: 060

REACTIONS (1)
  - Squamous cell carcinoma of the oral cavity [Recovering/Resolving]
